FAERS Safety Report 5256948-1 (Version None)
Quarter: 2007Q1

REPORT INFORMATION
  Report Type: 
  Country: None (occurrence: None)
  Receive Date: 20070307
  Receipt Date: 20061205
  Transmission Date: 20070707
  Serious: Yes (Hospitalization)
  Sender: FDA-Public Use
  Company Number: GBWYE623915MAY06

PATIENT
  Sex: Female

DRUGS (4)
  1. EFFEXOR XR [Suspect]
     Indication: DEPRESSION
     Route: 048
     Dates: end: 20060101
  2. EFFEXOR XR [Suspect]
     Route: 048
     Dates: start: 20060418, end: 20060501
  3. EFFEXOR XR [Suspect]
     Dosage: UNKNOWN DOSE
     Route: 048
     Dates: start: 20060501
  4. RISPERDAL [Concomitant]
     Indication: PSYCHOTIC DISORDER
     Route: 048
     Dates: start: 20060419, end: 20060608

REACTIONS (4)
  - ATRIAL FLUTTER [None]
  - DRUG WITHDRAWAL SYNDROME [None]
  - GASTROINTESTINAL HAEMORRHAGE [None]
  - MOOD ALTERED [None]
